FAERS Safety Report 15732521 (Version 1)
Quarter: 2018Q4

REPORT INFORMATION
  Report Type: Spontaneous
  Country: US (occurrence: US)
  Receive Date: 20181217
  Receipt Date: 20181217
  Transmission Date: 20190205
  Serious: Yes (Hospitalization)
  Sender: FDA-Public Use
  Company Number: US-VIFOR (INTERNATIONAL) INC.-VIT-2018-12259

PATIENT
  Sex: Male

DRUGS (16)
  1. NITRO-DUR [Concomitant]
     Active Substance: NITROGLYCERIN
  2. MYFORTIC [Concomitant]
     Active Substance: MYCOPHENOLATE SODIUM
  3. ELIQUIS [Concomitant]
     Active Substance: APIXABAN
  4. EPIPEN [Concomitant]
     Active Substance: EPINEPHRINE
  5. TRADJENTA [Concomitant]
     Active Substance: LINAGLIPTIN
  6. VASOTEC [Concomitant]
     Active Substance: ENALAPRIL MALEATE
  7. VELTASSA [Suspect]
     Active Substance: PATIROMER
     Indication: HYPERKALAEMIA
     Route: 048
     Dates: start: 20160617
  8. LIPITOR [Concomitant]
     Active Substance: ATORVASTATIN CALCIUM
  9. LOVAZA [Concomitant]
     Active Substance: OMEGA-3-ACID ETHYL ESTERS
  10. DIOVAN [Concomitant]
     Active Substance: VALSARTAN
  11. IMURAN [Concomitant]
     Active Substance: AZATHIOPRINE
  12. METANX [Concomitant]
     Active Substance: LEVOMEFOLATE CALCIUM\METHYLCOBALAMIN\PYRIDOXAL PHOSPHATE ANHYDROUS
  13. NITROGLYCERIN. [Concomitant]
     Active Substance: NITROGLYCERIN
  14. STARLIX [Concomitant]
     Active Substance: NATEGLINIDE
  15. ZANTAC [Concomitant]
     Active Substance: RANITIDINE HYDROCHLORIDE
  16. PREDNISONE. [Concomitant]
     Active Substance: PREDNISONE

REACTIONS (1)
  - Cardiac operation [Unknown]
